FAERS Safety Report 4424642-2 (Version None)
Quarter: 2004Q3

REPORT INFORMATION
  Report Type: 
  Country: None (occurrence: None)
  Receive Date: 20040719
  Receipt Date: 20031028
  Transmission Date: 20050211
  Serious: Yes (Hospitalization)
  Sender: FDA-Public Use
  Company Number: 184589

PATIENT
  Age: 49 Year
  Sex: Female
  Weight: 72.5755 kg

DRUGS (7)
  1. AVONEX [Suspect]
     Indication: MULTIPLE SCLEROSIS
     Dosage: 30 MCG QW IM
     Route: 030
     Dates: start: 19991201, end: 20030901
  2. AVONEX [Suspect]
     Indication: MULTIPLE SCLEROSIS
     Dosage: 30 MCG QW IM
     Route: 030
     Dates: start: 20030901, end: 20031001
  3. ESTRADIOL [Concomitant]
  4. ZOLOFT [Concomitant]
  5. LIPITOR [Concomitant]
  6. DARVOCET-N 100 [Concomitant]
  7. LODINE [Concomitant]

REACTIONS (20)
  - CANDIDIASIS [None]
  - CONSTIPATION [None]
  - CONTUSION [None]
  - DRUG HYPERSENSITIVITY [None]
  - FALL [None]
  - INFLUENZA LIKE ILLNESS [None]
  - INJECTION SITE HAEMORRHAGE [None]
  - INJECTION SITE PAIN [None]
  - INSOMNIA [None]
  - MAMMOGRAM ABNORMAL [None]
  - MULTIPLE SCLEROSIS [None]
  - MULTIPLE SCLEROSIS RELAPSE [None]
  - MUSCLE SPASMS [None]
  - NAUSEA [None]
  - OEDEMA GENITAL [None]
  - ORAL CANDIDIASIS [None]
  - RASH PAPULAR [None]
  - RASH PRURITIC [None]
  - TRIGEMINAL NEURALGIA [None]
  - VAGINAL CANDIDIASIS [None]
